FAERS Safety Report 13168107 (Version 1)
Quarter: 2017Q1

REPORT INFORMATION
  Report Type: Report from Study
  Country: AU (occurrence: AU)
  Receive Date: 20170131
  Receipt Date: 20170131
  Transmission Date: 20170428
  Serious: Yes (Hospitalization)
  Sender: FDA-Public Use
  Company Number: PHHO2013AU019652

PATIENT
  Age: 63 Year
  Sex: Male
  Weight: 72 kg

DRUGS (36)
  1. QUINAPRIL AND HYDROCHLOROTHIAZIDE [Concomitant]
     Indication: HYPERTENSION
     Dosage: UNK QD
     Route: 048
     Dates: start: 20070101, end: 20130101
  2. AMLODIPINE BESILATE W/ATORVASTATIN CALCIUM [Concomitant]
     Indication: HYPERCHOLESTEROLAEMIA
     Dosage: 1 QD
     Route: 048
     Dates: start: 20090101
  3. MAXOLON [Concomitant]
     Active Substance: METOCLOPRAMIDE HYDROCHLORIDE
     Indication: NAUSEA
     Dosage: 1 PRN
     Route: 048
     Dates: start: 20120509
  4. THYROXINE [Concomitant]
     Active Substance: LEVOTHYROXINE
     Dosage: 75 UG, QD
     Route: 048
     Dates: start: 20120823
  5. PAZOPANIB [Suspect]
     Active Substance: PAZOPANIB
     Indication: METASTATIC RENAL CELL CARCINOMA
     Dosage: 400 MG, UNK
     Route: 048
     Dates: start: 20120503, end: 20130114
  6. PARACETAMOL [Concomitant]
     Active Substance: ACETAMINOPHEN
     Indication: PAIN
     Dosage: 1000 MG, PRN
     Route: 048
     Dates: start: 20120401
  7. SOMAC [Concomitant]
     Active Substance: PANTOPRAZOLE SODIUM
     Indication: GASTROOESOPHAGEAL REFLUX DISEASE
     Dosage: 10 QD
     Route: 048
     Dates: start: 20120619, end: 20120712
  8. NILSTAT [Concomitant]
     Active Substance: NYSTATIN
     Indication: ORAL INFECTION
     Dosage: UNK
     Route: 048
     Dates: start: 20130628
  9. DEXAMETHASONE. [Concomitant]
     Active Substance: DEXAMETHASONE
     Indication: PROPHYLAXIS
     Dosage: 2 BID
     Route: 048
     Dates: start: 20130801, end: 20130808
  10. GEMFIBROZIL. [Concomitant]
     Active Substance: GEMFIBROZIL
     Indication: LIPIDS INCREASED
     Dosage: 600 BID
     Route: 048
     Dates: start: 20130904
  11. COLOXYL WITH SENNA [Concomitant]
     Active Substance: DOCUSATE\SENNOSIDES
     Indication: CONSTIPATION
     Dosage: 50 AC
     Route: 048
     Dates: start: 20130809, end: 20130823
  12. GASTROSTOP [Concomitant]
     Dosage: 1 QD
     Route: 048
     Dates: start: 20130530, end: 20130601
  13. FUNGILIN [Concomitant]
     Active Substance: AMPHOTERICIN B
     Indication: PRODUCT USED FOR UNKNOWN INDICATION
     Dosage: 1 QID
     Route: 048
     Dates: start: 20120619, end: 20120712
  14. MEGESTROL ACETATE. [Concomitant]
     Active Substance: MEGESTROL ACETATE
     Indication: DECREASED APPETITE
     Dosage: 160 MG, QD
     Route: 048
     Dates: start: 20120517
  15. AMLODIPINE BESILATE W/ATORVASTATIN CALCIUM [Concomitant]
     Indication: HYPERTENSION
  16. CLEXANE [Concomitant]
     Active Substance: ENOXAPARIN SODIUM
     Indication: PRODUCT USED FOR UNKNOWN INDICATION
     Dosage: 40 QD
     Route: 065
     Dates: start: 20130821, end: 20130822
  17. NYSTATIN. [Concomitant]
     Active Substance: NYSTATIN
     Indication: ORAL INFECTION
     Dosage: 1 QID
     Route: 065
     Dates: start: 20130810, end: 20130823
  18. PREDNISOLON [Concomitant]
     Active Substance: PREDNISOLONE
     Indication: RASH
     Dosage: UNK 5 BID
     Route: 048
     Dates: start: 20120205, end: 20130301
  19. HALOPERIDOL. [Concomitant]
     Active Substance: HALOPERIDOL
     Indication: DELIRIUM
     Dosage: 1
     Route: 058
     Dates: start: 20130925, end: 20131001
  20. OXYCODONE [Concomitant]
     Active Substance: OXYCODONE
     Indication: PAIN
     Dosage: 10 PRN
     Route: 058
     Dates: start: 20130925, end: 20131001
  21. PANTOPRAZOLE [Concomitant]
     Active Substance: PANTOPRAZOLE SODIUM
     Indication: GASTROOESOPHAGEAL REFLUX DISEASE
     Dosage: 40 QD
     Route: 048
     Dates: start: 20130810
  22. STEMETIL//PROCHLORPERAZINE [Concomitant]
     Active Substance: PROCHLORPERAZINE
     Indication: NAUSEA
     Dosage: 5 PRN
     Route: 048
     Dates: start: 20120509
  23. METOCLOPRAMIDE. [Concomitant]
     Active Substance: METOCLOPRAMIDE
     Indication: NAUSEA
     Dosage: 10 PRN
     Route: 048
     Dates: start: 20120509
  24. CADUET [Concomitant]
     Active Substance: AMLODIPINE BESYLATE\ATORVASTATIN CALCIUM
     Indication: PRODUCT USED FOR UNKNOWN INDICATION
     Dosage: 1 QD
     Route: 048
     Dates: start: 20100701
  25. KEFLEX [Concomitant]
     Active Substance: CEPHALEXIN
     Indication: RASH
     Dosage: UNK
     Route: 048
     Dates: start: 20120619, end: 20120628
  26. ADVANTAN [Concomitant]
     Active Substance: CORTICOSTEROID NOS
     Indication: RASH
     Dosage: 1 BID
     Route: 061
     Dates: start: 20130307, end: 20130401
  27. CHOLECALCIFEROL [Concomitant]
     Active Substance: CHOLECALCIFEROL
     Indication: VITAMIN D DEFICIENCY
     Dosage: 50 BID
     Route: 048
     Dates: start: 20130901
  28. PAZOPANIB [Suspect]
     Active Substance: PAZOPANIB
     Dosage: UNK
     Route: 048
  29. ACCURETIC [Concomitant]
     Active Substance: HYDROCHLOROTHIAZIDE\QUINAPRIL HYDROCHLORIDE
     Indication: HYPERTENSION
     Dosage: 1 QD
     Route: 065
     Dates: start: 20070701
  30. THYROXINE [Concomitant]
     Active Substance: LEVOTHYROXINE
     Indication: HYPOTHYROIDISM
     Dosage: 50 UG, QD
     Route: 048
     Dates: start: 20120629, end: 20120822
  31. AMPHOTERICIN [Concomitant]
     Active Substance: AMPHOTERICIN B
     Indication: PRODUCT USED FOR UNKNOWN INDICATION
     Dosage: UNK QID
     Route: 065
     Dates: start: 20120619, end: 20120628
  32. DEXAMETHASONE. [Concomitant]
     Active Substance: DEXAMETHASONE
     Dosage: 4 BID
     Route: 048
     Dates: start: 20130809, end: 20130901
  33. MOVICOL [Concomitant]
     Active Substance: POLYETHYLENE GLYCOL 3350\POTASSIUM CHLORIDE\SODIUM BICARBONATE\SODIUM CHLORIDE
     Indication: CONSTIPATION
     Dosage: 1 PRN
     Route: 048
     Dates: start: 20120517
  34. GASTROSTOP [Concomitant]
     Indication: DIARRHOEA
     Dosage: 1 PRN
     Route: 048
     Dates: start: 20120823, end: 20120905
  35. HYDROMORPHONE [Concomitant]
     Active Substance: HYDROMORPHONE
     Indication: PAIN
     Dosage: 1 PRN
     Route: 058
     Dates: start: 20130925, end: 20131001
  36. TEMAZEPAM. [Concomitant]
     Active Substance: TEMAZEPAM
     Indication: DIARRHOEA
     Dosage: 10 QD
     Route: 048
     Dates: start: 20130925

REACTIONS (1)
  - Gastroenteritis [Recovered/Resolved]

NARRATIVE: CASE EVENT DATE: 20130112
